FAERS Safety Report 6612750-7 (Version None)
Quarter: 2010Q1

REPORT INFORMATION
  Report Type: 
  Country: None (occurrence: None)
  Receive Date: 20100303
  Receipt Date: 20100219
  Transmission Date: 20100710
  Serious: Yes (Death, Other)
  Sender: FDA-Public Use
  Company Number: JP-PFIZER INC-2010016309

PATIENT
  Age: 45 Year
  Sex: Female
  Weight: 39 kg

DRUGS (16)
  1. SILDENAFIL CITRATE [Suspect]
     Indication: PULMONARY ARTERIAL HYPERTENSION
     Dosage: 20 MG, 3X/DAY
     Route: 048
     Dates: start: 20090201
  2. BERAPROST SODIUM [Concomitant]
     Route: 048
  3. TRACLEER [Concomitant]
     Route: 048
  4. FLOLAN [Concomitant]
     Route: 048
  5. LASIX [Concomitant]
     Route: 048
  6. FLUITRAN [Concomitant]
  7. ALDACTONE [Concomitant]
     Route: 048
  8. PREDNISOLONE [Concomitant]
     Route: 048
  9. DOBUTAMINE HYDROCHLORIDE [Concomitant]
     Route: 042
     Dates: start: 20091207
  10. SERENACE [Concomitant]
     Route: 042
     Dates: start: 20091212
  11. MILRILA [Concomitant]
     Route: 042
     Dates: start: 20091216
  12. MORPHINE HYDROCHLORIDE [Concomitant]
     Route: 042
     Dates: start: 20091217
  13. EPINEPHRINE [Concomitant]
     Route: 042
     Dates: start: 20091220
  14. ATROPINE SULFATE [Concomitant]
     Route: 042
     Dates: start: 20091220
  15. DOPAMINE HCL [Concomitant]
     Route: 042
     Dates: start: 20091220
  16. NORADRENALINE [Concomitant]
     Route: 042
     Dates: start: 20091220

REACTIONS (1)
  - RIGHT VENTRICULAR FAILURE [None]
